FAERS Safety Report 22062102 (Version 1)
Quarter: 2023Q1

REPORT INFORMATION
  Report Type: Spontaneous
  Country: US (occurrence: US)
  Receive Date: 20230304
  Receipt Date: 20230304
  Transmission Date: 20230418
  Serious: Yes (Death, Hospitalization)
  Sender: FDA-Public Use
  Company Number: US-drreddys-LIT/USA/23/0161984

PATIENT
  Age: 61 Year
  Sex: Male

DRUGS (8)
  1. PREGABALIN [Suspect]
     Active Substance: PREGABALIN
     Indication: Neuropathy peripheral
     Dosage: ON DAY 77
  2. PREGABALIN [Suspect]
     Active Substance: PREGABALIN
     Dosage: UP TITRATED
  3. PYRIDOXINE [Suspect]
     Active Substance: PYRIDOXINE
     Indication: Lung adenocarcinoma stage III
  4. PEMETREXED DISODIUM [Concomitant]
     Active Substance: PEMETREXED DISODIUM
     Indication: Lung adenocarcinoma stage III
  5. CISPLATIN [Concomitant]
     Active Substance: CISPLATIN
     Indication: Lung adenocarcinoma stage III
  6. CARBOPLATIN [Concomitant]
     Active Substance: CARBOPLATIN
     Indication: Lung adenocarcinoma stage III
  7. DURVALUMAB [Concomitant]
     Active Substance: DURVALUMAB
     Indication: Lung adenocarcinoma stage III
  8. PEMBROLIZUMAB [Concomitant]
     Active Substance: PEMBROLIZUMAB
     Indication: Lung adenocarcinoma stage III

REACTIONS (5)
  - Death [Fatal]
  - Pancytopenia [Unknown]
  - COVID-19 [Not Recovered/Not Resolved]
  - Anaemia [Recovering/Resolving]
  - Febrile neutropenia [Unknown]
